FAERS Safety Report 11811150 (Version 3)
Quarter: 2016Q2

REPORT INFORMATION
  Report Type: Spontaneous
  Country: JP (occurrence: JP)
  Receive Date: 20151208
  Receipt Date: 20160429
  Transmission Date: 20160815
  Serious: Yes (Death, Hospitalization)
  Sender: FDA-Public Use
  Company Number: JP-MALLINCKRODT-T201505276

PATIENT
  Age: 84 Year
  Sex: Male
  Weight: 56 kg

DRUGS (25)
  1. AMLODIPINE [Concomitant]
     Active Substance: AMLODIPINE BESYLATE
     Dosage: 2.5 MG
     Route: 048
     Dates: start: 20141217
  2. LECICARBON [Concomitant]
     Active Substance: SODIUM BICARBONATE\SODIUM PHOSPHATE, MONOBASIC
     Dosage: 1 DF
     Route: 054
     Dates: start: 20150123
  3. CYMBALTA [Concomitant]
     Active Substance: DULOXETINE HYDROCHLORIDE
     Indication: ANALGESIC THERAPY
     Dosage: 20 MG
     Route: 048
     Dates: start: 20150204, end: 20150302
  4. ALDACTONE A [Concomitant]
     Active Substance: SPIRONOLACTONE
     Dosage: 25 MG
     Route: 048
     Dates: start: 20150825, end: 20150920
  5. ANTEBATE [Concomitant]
     Active Substance: BETAMETHASONE DIPROPIONATE
     Dosage: 5 G
     Route: 061
     Dates: start: 20141208
  6. NEXIUM [Concomitant]
     Active Substance: ESOMEPRAZOLE MAGNESIUM
     Dosage: 20 MG
     Route: 048
     Dates: start: 20150401, end: 20150920
  7. DESYREL [Concomitant]
     Active Substance: TRAZODONE HYDROCHLORIDE
     Dosage: 25 MG
     Route: 048
     Dates: start: 20141208, end: 20141217
  8. HIRUDOID [Concomitant]
     Active Substance: GLYCOSAMINOGLYCANS
     Dosage: 25 G
     Route: 061
     Dates: start: 20141208
  9. OXINORM [Concomitant]
     Active Substance: OXYCODONE HYDROCHLORIDE
     Indication: ANALGESIC THERAPY
     Dosage: 5 MG
     Route: 048
     Dates: start: 20141205
  10. AMITIZA [Concomitant]
     Active Substance: LUBIPROSTONE
     Dosage: 24 MCG
     Route: 048
     Dates: start: 20141208
  11. KREMEZIN [Concomitant]
     Active Substance: ACTIVATED CHARCOAL
     Dosage: 6 G
     Route: 048
     Dates: end: 20150319
  12. KALIMATE [Concomitant]
     Active Substance: CALCIUM POLYSTYRENE SULFONATE
     Dosage: 5 G
     Route: 048
     Dates: end: 20150403
  13. MUCODYNE [Concomitant]
     Active Substance: CARBOCYSTEINE
     Dosage: 1500 MG
     Route: 048
     Dates: start: 20150123
  14. RINDERON V [Concomitant]
     Active Substance: BETAMETHASONE VALERATE
     Indication: ANALGESIC THERAPY
     Dosage: 1 MG
     Route: 048
     Dates: start: 20150401
  15. PREMINENT [Concomitant]
     Active Substance: HYDROCHLOROTHIAZIDE\LOSARTAN POTASSIUM
     Dosage: 1 DF
     Route: 048
  16. LYRICA [Concomitant]
     Active Substance: PREGABALIN
     Indication: ANALGESIC THERAPY
     Dosage: 75 MG
     Route: 048
     Dates: start: 20150724, end: 20150920
  17. METHADONE [Suspect]
     Active Substance: METHADONE HYDROCHLORIDE
     Indication: CANCER PAIN
     Dosage: 5 MG, 15 MG DAILY DOSE
     Route: 048
     Dates: start: 20141208, end: 20150123
  18. DIART [Concomitant]
     Active Substance: AZOSEMIDE
     Dosage: 60 MG
     Route: 048
     Dates: start: 20150825, end: 20150920
  19. RINDERON V [Concomitant]
     Active Substance: BETAMETHASONE VALERATE
     Dosage: 1.5 MG
     Route: 048
     Dates: start: 20150724, end: 20150920
  20. METHADONE [Suspect]
     Active Substance: METHADONE HYDROCHLORIDE
     Dosage: 10 MG, (30 MG DAILY DOSE)
     Route: 048
     Dates: start: 20150123, end: 20150204
  21. METHADONE [Suspect]
     Active Substance: METHADONE HYDROCHLORIDE
     Dosage: 15 MG, (45 MG DAILY DOSE)
     Route: 048
     Dates: start: 20150204, end: 20150920
  22. POPIYODON [Concomitant]
     Dosage: 30 ML
     Route: 049
     Dates: start: 20141210, end: 20141224
  23. PARIET [Concomitant]
     Active Substance: RABEPRAZOLE SODIUM
     Dosage: 10 MG
     Route: 048
     Dates: end: 20150331
  24. CELECOX [Concomitant]
     Active Substance: CELECOXIB
     Indication: ANALGESIC THERAPY
     Dosage: 200 MG
     Route: 048
     Dates: start: 20150213
  25. FEBURIC [Concomitant]
     Active Substance: FEBUXOSTAT
     Dosage: 10 MG
     Route: 048
     Dates: start: 20141208

REACTIONS (4)
  - Rectosigmoid cancer [Fatal]
  - Stomatitis [Recovered/Resolved]
  - Constipation [Recovering/Resolving]
  - Dyspnoea [Recovering/Resolving]

NARRATIVE: CASE EVENT DATE: 20150123
